FAERS Safety Report 19421434 (Version 1)
Quarter: 2021Q2

REPORT INFORMATION
  Report Type: Spontaneous
  Country: JP (occurrence: JP)
  Receive Date: 20210616
  Receipt Date: 20210616
  Transmission Date: 20210717
  Serious: Yes (Hospitalization, Other)
  Sender: FDA-Public Use
  Company Number: JP-TAKEDA-2021TJP036975

PATIENT
  Age: 89 Year
  Sex: Female

DRUGS (10)
  1. TAKELDA COMBINATION TABLETS [Suspect]
     Active Substance: ASPIRIN\LANSOPRAZOLE
     Indication: CEREBRAL INFARCTION
     Dosage: 1 DOSAGE FORM, QD
     Route: 048
     Dates: start: 20190917, end: 20190927
  2. DAISAIKOTO [Concomitant]
     Active Substance: HERBALS
     Dosage: 7.5 GRAM
     Route: 065
  3. TEARBALANCE [Concomitant]
     Active Substance: HYALURONATE SODIUM
     Dosage: UNK
     Route: 065
  4. AMLODIN [Concomitant]
     Active Substance: AMLODIPINE BESYLATE
     Dosage: 5 MILLIGRAM
     Route: 065
  5. CABPIRIN COMBINATION TABLETS [Suspect]
     Active Substance: ASPIRIN\VONOPRAZAN FUMARATE
     Indication: CEREBRAL INFARCTION
     Dosage: 1 DOSAGE FORM, QD
     Route: 048
     Dates: start: 20200928, end: 20210127
  6. CABPIRIN COMBINATION TABLETS [Suspect]
     Active Substance: ASPIRIN\VONOPRAZAN FUMARATE
     Dosage: UNK
     Route: 048
     Dates: start: 20210304
  7. BAYASPIRIN [Suspect]
     Active Substance: ASPIRIN
     Indication: CEREBRAL INFARCTION
     Dosage: 1 DOSAGE FORM, QD
     Route: 048
     Dates: end: 20190916
  8. LANSOPRAZOLE. [Concomitant]
     Active Substance: LANSOPRAZOLE
     Dosage: 15 MILLIGRAM
     Route: 065
  9. EDIROL [Concomitant]
     Active Substance: ELDECALCITOL
     Dosage: 0.5 MICROGRAM
     Route: 065
  10. NIPRADOLOL [Concomitant]
     Dosage: UNK
     Route: 065

REACTIONS (3)
  - Shock haemorrhagic [Recovered/Resolved]
  - Diverticulitis [Recovered/Resolved]
  - Haematochezia [Recovered/Resolved]

NARRATIVE: CASE EVENT DATE: 20210226
